FAERS Safety Report 24264321 (Version 1)
Quarter: 2024Q3

REPORT INFORMATION
  Report Type: Spontaneous
  Country: US (occurrence: US)
  Receive Date: 20240829
  Receipt Date: 20240829
  Transmission Date: 20241016
  Serious: Yes (Hospitalization)
  Sender: ELI LILLY AND CO
  Company Number: US-ELI_LILLY_AND_COMPANY-US202408016250

PATIENT
  Age: 62 Year
  Sex: Female

DRUGS (8)
  1. INSULIN LISPRO [Suspect]
     Active Substance: INSULIN LISPRO
     Indication: Product used for unknown indication
     Dosage: UNK UNK, TID (SLIDING SCALE)
     Route: 065
  2. INSULIN LISPRO [Suspect]
     Active Substance: INSULIN LISPRO
     Indication: Product used for unknown indication
     Dosage: UNK UNK, TID (SLIDING SCALE)
     Route: 065
  3. INSULIN LISPRO [Suspect]
     Active Substance: INSULIN LISPRO
     Dosage: UNK UNK, TID (SLIDING SCALE)
     Route: 065
  4. INSULIN LISPRO [Suspect]
     Active Substance: INSULIN LISPRO
     Dosage: UNK UNK, TID (SLIDING SCALE)
     Route: 065
  5. TRESIBA [Concomitant]
     Active Substance: INSULIN DEGLUDEC
     Indication: Product used for unknown indication
     Dosage: 20 U, UNKNOWN
     Route: 065
  6. PERCOCET [Concomitant]
     Active Substance: ACETAMINOPHEN\OXYCODONE HYDROCHLORIDE
     Indication: Product used for unknown indication
  7. GAPAPEN [Concomitant]
     Indication: Product used for unknown indication
  8. GLIMEPIRIDE [Concomitant]
     Active Substance: GLIMEPIRIDE
     Indication: Product used for unknown indication

REACTIONS (7)
  - Pancreatitis [Unknown]
  - Post procedural complication [Unknown]
  - Blood glucose increased [Unknown]
  - Pain of skin [Unknown]
  - Neuropathy peripheral [Unknown]
  - Weight increased [Unknown]
  - Injection site pain [Unknown]
